FAERS Safety Report 15414533 (Version 1)
Quarter: 2018Q3

REPORT INFORMATION
  Report Type: Spontaneous
  Country: US (occurrence: US)
  Receive Date: 20180921
  Receipt Date: 20180921
  Transmission Date: 20181010
  Serious: No
  Sender: FDA-Public Use
  Company Number: US-MYLANLABS-2018M1065599

PATIENT
  Sex: Female

DRUGS (1)
  1. FENTANYL TRANSDERMAL SYSTEM [Suspect]
     Active Substance: FENTANYL
     Indication: PAIN
     Dosage: 25 ?G, EVERY 3 DAYS
     Route: 062

REACTIONS (4)
  - Wrong technique in product usage process [Recovering/Resolving]
  - Product adhesion issue [Unknown]
  - Application site urticaria [Unknown]
  - Application site irritation [Recovering/Resolving]
